FAERS Safety Report 15812934 (Version 2)
Quarter: 2019Q1

REPORT INFORMATION
  Report Type: Report from Study
  Country: US (occurrence: US)
  Receive Date: 20190111
  Receipt Date: 20190207
  Transmission Date: 20190417
  Serious: Yes (Hospitalization)
  Sender: FDA-Public Use
  Company Number: US-EXELIXIS-XL18419018069

PATIENT
  Age: 15 Year
  Sex: Female

DRUGS (1)
  1. XL184 [Suspect]
     Active Substance: CABOZANTINIB
     Indication: OSTEOSARCOMA
     Dosage: 40 MG/M2, QD
     Route: 048
     Dates: start: 20180606

REACTIONS (2)
  - Pneumothorax [Recovered/Resolved]
  - Pneumothorax [Unknown]

NARRATIVE: CASE EVENT DATE: 20180925
